FAERS Safety Report 9619806 (Version 1)
Quarter: 2013Q4

REPORT INFORMATION
  Report Type: Spontaneous
  Country: FR (occurrence: FR)
  Receive Date: 20131014
  Receipt Date: 20131014
  Transmission Date: 20140711
  Serious: Yes (Hospitalization)
  Sender: FDA-Public Use
  Company Number: FR-UCBSA-099476

PATIENT
  Age: 39 Year
  Sex: Female

DRUGS (6)
  1. VIMPAT [Suspect]
     Dosage: INCREASED DOSE
     Route: 048
  2. VIMPAT [Interacting]
     Route: 048
  3. VIMPAT [Interacting]
     Dosage: RAPIDLY DOSE DECREASED
     Route: 048
     Dates: end: 20130509
  4. DEPAKINE CHRONO [Interacting]
     Dosage: FORM: SCORED EXTENDED RELEASE FILM COATED TABLETS
     Route: 048
  5. KEPPRA [Concomitant]
  6. KEPPRA [Concomitant]
     Dosage: DOSE DECREASED

REACTIONS (3)
  - Apraxia [Recovered/Resolved]
  - Balance disorder [Recovered/Resolved]
  - Drug interaction [Unknown]
